FAERS Safety Report 8003424-9 (Version None)
Quarter: 2011Q4

REPORT INFORMATION
  Report Type: 
  Country: None (occurrence: None)
  Receive Date: 20111222
  Receipt Date: 20111220
  Transmission Date: 20120403
  Serious: Yes (Other)
  Sender: FDA-Public Use
  Company Number: US-TEVA-310872USA

PATIENT
  Sex: Female

DRUGS (2)
  1. LUNESTA [Concomitant]
     Indication: SLEEP DISORDER
  2. AMPHETAMINE AND DEXTROAMPHETAMINE SALTS [Suspect]
     Dates: start: 20090701

REACTIONS (22)
  - INSOMNIA [None]
  - NERVOUS SYSTEM DISORDER [None]
  - FATIGUE [None]
  - MENTAL IMPAIRMENT [None]
  - SPEECH DISORDER [None]
  - PSYCHIATRIC SYMPTOM [None]
  - MOOD SWINGS [None]
  - TREMOR [None]
  - TENSION [None]
  - FACIAL PAIN [None]
  - DIZZINESS [None]
  - ANXIETY [None]
  - DEPRESSION [None]
  - FEELING ABNORMAL [None]
  - CRYING [None]
  - AGITATION [None]
  - ASTHENIA [None]
  - IMPAIRED DRIVING ABILITY [None]
  - PARAESTHESIA [None]
  - EMOTIONAL DISORDER [None]
  - PALPITATIONS [None]
  - ACTIVITIES OF DAILY LIVING IMPAIRED [None]
